FAERS Safety Report 6084710-9 (Version None)
Quarter: 2009Q1

REPORT INFORMATION
  Report Type: 
  Country: None (occurrence: None)
  Receive Date: 20090219
  Receipt Date: 20090123
  Transmission Date: 20090719
  Serious: Yes (Other)
  Sender: FDA-Public Use
  Company Number: US-PFIZER INC-2009160607

PATIENT
  Age: 50 Year
  Sex: Female

DRUGS (1)
  1. ZIPRASIDONE HCL [Suspect]
     Dosage: 20 MG, 2X/DAY

REACTIONS (6)
  - EXTRAPYRAMIDAL DISORDER [None]
  - FEMALE ORGASMIC DISORDER [None]
  - FEMALE SEXUAL AROUSAL DISORDER [None]
  - PHARYNGEAL OEDEMA [None]
  - SWOLLEN TONGUE [None]
  - TORTICOLLIS [None]
